FAERS Safety Report 19251519 (Version 1)
Quarter: 2021Q2

REPORT INFORMATION
  Report Type: Report from Study
  Country: RS (occurrence: RS)
  Receive Date: 20210512
  Receipt Date: 20210512
  Transmission Date: 20210717
  Serious: Yes (Other)
  Sender: FDA-Public Use
  Company Number: RS-SEATTLE GENETICS-2021SGN02671

PATIENT
  Age: 24 Year
  Sex: Male

DRUGS (1)
  1. BRENTUXIMAB VEDOTIN?MPI [Suspect]
     Active Substance: BRENTUXIMAB VEDOTIN
     Indication: HODGKIN^S DISEASE
     Dosage: UNK
     Route: 042
     Dates: start: 20200526, end: 20200820

REACTIONS (5)
  - Laryngeal oedema [Recovered/Resolved]
  - Nausea [Recovered/Resolved]
  - Hodgkin^s disease [Unknown]
  - Vomiting [Recovered/Resolved]
  - Infusion related reaction [Recovered/Resolved]

NARRATIVE: CASE EVENT DATE: 20200728
